FAERS Safety Report 10179352 (Version 1)
Quarter: 2014Q2

REPORT INFORMATION
  Report Type: Spontaneous
  Country: US (occurrence: US)
  Receive Date: 20140519
  Receipt Date: 20140519
  Transmission Date: 20141212
  Serious: No
  Sender: FDA-Public Use
  Company Number: US-TEVA-482345USA

PATIENT
  Age: 24 Year
  Sex: Female
  Weight: 108.05 kg

DRUGS (2)
  1. PARAGARD 380A [Suspect]
     Indication: POST COITAL CONTRACEPTION
     Route: 015
     Dates: start: 20140423, end: 20140506
  2. PRENATAL VITAMINS [Concomitant]
     Indication: VITAMIN SUPPLEMENTATION

REACTIONS (2)
  - Vulvovaginal pain [Recovered/Resolved]
  - Device expulsion [Recovered/Resolved]
